FAERS Safety Report 6216906-7 (Version None)
Quarter: 2009Q2

REPORT INFORMATION
  Report Type: 
  Country: None (occurrence: None)
  Receive Date: 20090604
  Receipt Date: 20090520
  Transmission Date: 20091009
  Serious: Yes (Death, Hospitalization)
  Sender: FDA-Public Use
  Company Number: 2009001541

PATIENT
  Age: 93 Year
  Sex: Male

DRUGS (1)
  1. TARCEVA [Suspect]
     Dosage: 150 MG, QD, ORAL
     Route: 048
     Dates: start: 20090201, end: 20090501

REACTIONS (4)
  - ANAEMIA [None]
  - GASTROINTESTINAL ULCER [None]
  - PNEUMONIA [None]
  - SMALL INTESTINAL HAEMORRHAGE [None]
